FAERS Safety Report 10412120 (Version 1)
Quarter: 2014Q3

REPORT INFORMATION
  Report Type: Report from Study
  Country: CA (occurrence: CA)
  Receive Date: 20140827
  Receipt Date: 20140827
  Transmission Date: 20150326
  Serious: Yes (Hospitalization, Other)
  Sender: FDA-Public Use
  Company Number: CA-JNJFOC-20140823495

PATIENT
  Age: 44 Year
  Sex: Female
  Weight: 95 kg

DRUGS (1)
  1. REMICADE [Suspect]
     Active Substance: INFLIXIMAB
     Indication: CROHN^S DISEASE
     Route: 042
     Dates: start: 2010

REACTIONS (5)
  - Bundle branch block [Unknown]
  - Hysterectomy [Unknown]
  - Urinary tract infection [Recovered/Resolved]
  - Pruritus [Unknown]
  - Incision site infection [Recovering/Resolving]

NARRATIVE: CASE EVENT DATE: 20140725
